FAERS Safety Report 17834988 (Version 1)
Quarter: 2020Q2

REPORT INFORMATION
  Report Type: Spontaneous
  Country: PL (occurrence: PL)
  Receive Date: 20200528
  Receipt Date: 20200528
  Transmission Date: 20200714
  Serious: Yes (Hospitalization, Other)
  Sender: FDA-Public Use
  Company Number: PL-ASTELLAS-2020US017878

PATIENT
  Age: 37 Year
  Sex: Male

DRUGS (6)
  1. VALGANCICLOVIR. [Concomitant]
     Active Substance: VALGANCICLOVIR
     Indication: PRODUCT USED FOR UNKNOWN INDICATION
     Route: 065
  2. ENCORTON [PREDNISONE] [Concomitant]
     Active Substance: PREDNISONE
     Indication: RENAL AND PANCREAS TRANSPLANT
     Route: 065
  3. LOW MOLECULAR WEIGHT HEPARIN [Concomitant]
     Active Substance: UNSPECIFIED INGREDIENT
     Indication: PROPHYLAXIS
     Dosage: UNK UNK, UNKNOWN FREQ.
     Route: 065
  4. MYCOPHENOLATE MOFETIL. [Concomitant]
     Active Substance: MYCOPHENOLATE MOFETIL
     Indication: RENAL AND PANCREAS TRANSPLANT
     Route: 065
  5. TRIMETHOPRIM SULFAMETHOXAZOLE [Concomitant]
     Active Substance: SULFAMETHOXAZOLE\TRIMETHOPRIM
     Indication: PRODUCT USED FOR UNKNOWN INDICATION
     Route: 065
  6. TACROLIMUS. [Suspect]
     Active Substance: TACROLIMUS
     Indication: RENAL AND PANCREAS TRANSPLANT
     Route: 065

REACTIONS (5)
  - Skin necrosis [Recovered/Resolved]
  - Escherichia infection [Recovered/Resolved]
  - Klebsiella infection [Recovered/Resolved]
  - Enterococcal infection [Recovered/Resolved]
  - Localised infection [Recovered/Resolved]
